FAERS Safety Report 9986002 (Version 1)
Quarter: 2014Q1

REPORT INFORMATION
  Report Type: Report from Study
  Country: US (occurrence: US)
  Receive Date: 20140307
  Receipt Date: 20140307
  Transmission Date: 20141002
  Serious: No
  Sender: FDA-Public Use
  Company Number: US-ABBVIE-13P-163-1089426-00

PATIENT
  Age: 49 Year
  Sex: Female

DRUGS (9)
  1. HUMIRA [Suspect]
     Indication: BEHCET^S SYNDROME
     Route: 058
     Dates: start: 20130324
  2. PAIN MEDICATION [Concomitant]
     Indication: BEHCET^S SYNDROME
  3. DILAUDID [Concomitant]
     Indication: BEHCET^S SYNDROME
  4. SOMA COMPOUND [Concomitant]
     Indication: MUSCLE SPASMS
  5. PLAVIX [Concomitant]
     Indication: PRODUCT USED FOR UNKNOWN INDICATION
  6. METOPROLOL [Concomitant]
     Indication: HYPERTENSION
  7. LUNESTA [Concomitant]
     Indication: INSOMNIA
  8. AMITRIPTYLINE [Concomitant]
     Indication: PAIN
  9. XANAX [Concomitant]
     Indication: BEHCET^S SYNDROME

REACTIONS (3)
  - Circumstance or information capable of leading to medication error [Recovered/Resolved]
  - Drug ineffective [Unknown]
  - Off label use [Unknown]
